FAERS Safety Report 11750279 (Version 3)
Quarter: 2016Q1

REPORT INFORMATION
  Report Type: Spontaneous
  Country: US (occurrence: US)
  Receive Date: 20151118
  Receipt Date: 20160330
  Transmission Date: 20160525
  Serious: Yes (Hospitalization)
  Sender: FDA-Public Use
  Company Number: US-PFIZER INC-2015386573

PATIENT
  Age: 81 Year
  Sex: Female
  Weight: 63 kg

DRUGS (13)
  1. COLACE [Concomitant]
     Active Substance: DOCUSATE SODIUM
     Dosage: 400 MG, 1X/DAY, ONE CAPSULE ONE TIME A DAY
  2. CRESTOR [Concomitant]
     Active Substance: ROSUVASTATIN CALCIUM
     Dosage: 20 MG, ONLY ON MONDAY AND FRIDAY
  3. SPIRONOLACTONE. [Concomitant]
     Active Substance: SPIRONOLACTONE
     Dosage: 25 MG, ONE TABLET A DAY
  4. INSULIN [Concomitant]
     Active Substance: INSULIN NOS
     Dosage: ONCE A DAY
  5. MAGNESIUM [Concomitant]
     Active Substance: MAGNESIUM
     Dosage: 400 MG, 2X/DAY
  6. DIGOXIN. [Concomitant]
     Active Substance: DIGOXIN
     Indication: CARDIAC DISORDER
     Dosage: 0.5 MG, DAILY
     Route: 048
  7. FUROSEMIDE. [Concomitant]
     Active Substance: FUROSEMIDE
     Indication: FLUID RETENTION
     Dosage: 100 MG, HALF A PILL EVERY DAY
  8. BABY ASPIRIN [Concomitant]
     Active Substance: ASPIRIN
     Dosage: 81 MG, 1 TABLET EVERY OTHER DAY
     Route: 048
  9. TYLENOL [Concomitant]
     Active Substance: ACETAMINOPHEN
     Indication: HEADACHE
     Dosage: 325 MG, AS NEEDED
  10. REVATIO [Suspect]
     Active Substance: SILDENAFIL CITRATE
     Indication: PULMONARY HYPERTENSION
     Dosage: THREE TIMES A DAY
     Route: 048
  11. POTASSIUM [Concomitant]
     Active Substance: POTASSIUM
     Dosage: 20 MG, DAILY
     Route: 048
  12. METFORMIN [Concomitant]
     Active Substance: METFORMIN HYDROCHLORIDE
     Dosage: 500 MG, 2X/DAY
  13. REMODULIN [Concomitant]
     Active Substance: TREPROSTINIL
     Dosage: PUT A DOSE IN TO HER LUNGS, IN A PORT AT EVERY 48 HOURS

REACTIONS (5)
  - Contusion [Unknown]
  - Gait disturbance [Unknown]
  - Fall [Unknown]
  - Head injury [Unknown]
  - Injury [Unknown]

NARRATIVE: CASE EVENT DATE: 20151102
